FAERS Safety Report 7624095-7 (Version None)
Quarter: 2011Q3

REPORT INFORMATION
  Report Type: 
  Country: None (occurrence: None)
  Receive Date: 20110712
  Receipt Date: 20110627
  Transmission Date: 20111222
  Serious: Yes (Death)
  Sender: FDA-Public Use
  Company Number: OPER20110153

PATIENT
  Age: 49 Year
  Sex: Female
  Weight: 91.173 kg

DRUGS (3)
  1. ALPRAZOLAM [Suspect]
     Indication: DRUG ABUSE
  2. ETHANOL (ETHANOL) [Suspect]
     Indication: DRUG ABUSE
     Dosage: ORAL
     Route: 048
  3. OPANA ER [Suspect]
     Indication: DRUG ABUSE

REACTIONS (10)
  - LEFT VENTRICULAR HYPERTROPHY [None]
  - ARTERIOSCLEROSIS CORONARY ARTERY [None]
  - HEPATIC STEATOSIS [None]
  - AORTIC ARTERIOSCLEROSIS [None]
  - DRUG SCREEN POSITIVE [None]
  - CARDIAC HYPERTROPHY [None]
  - POISONING [None]
  - NEPHROSCLEROSIS [None]
  - UNRESPONSIVE TO STIMULI [None]
  - HEPATOMEGALY [None]
